FAERS Safety Report 18546703 (Version 1)
Quarter: 2020Q4

REPORT INFORMATION
  Report Type: Spontaneous
  Country: CN (occurrence: CN)
  Receive Date: 20201125
  Receipt Date: 20201125
  Transmission Date: 20210114
  Serious: Yes (Other)
  Sender: FDA-Public Use
  Company Number: CN-PFIZER INC-2020461750

PATIENT
  Age: 49 Year
  Sex: Female
  Weight: 55 kg

DRUGS (6)
  1. CELECOXIB. [Suspect]
     Active Substance: CELECOXIB
     Indication: RHEUMATOID ARTHRITIS
     Dosage: 0.2 G, 2X/DAY
     Route: 048
     Dates: start: 20201109, end: 20201111
  2. GLUCOSE [Concomitant]
     Active Substance: DEXTROSE
     Indication: VEHICLE SOLUTION USE
     Dosage: 250 ML, 1X/DAY
     Route: 041
     Dates: start: 20201109, end: 20201111
  3. XUE SAI TONG [Concomitant]
     Indication: SYMPTOMATIC TREATMENT
     Dosage: 200 MG, 1X/DAY
     Route: 041
     Dates: start: 20201109, end: 20201111
  4. KE YI LIN [Concomitant]
     Indication: SYMPTOMATIC TREATMENT
     Dosage: 15 MG, 2X/DAY
     Route: 048
     Dates: start: 20201109, end: 20201111
  5. CALTRATE WITH VITAMIN D [Concomitant]
     Active Substance: CALCIUM CARBONATE\CHOLECALCIFEROL
     Indication: OSTEOPOROSIS
     Dosage: 0.6 G, 2X/DAY
     Route: 048
     Dates: start: 20201109, end: 20201111
  6. HUA NA FU [Concomitant]
     Indication: SYMPTOMATIC TREATMENT
     Dosage: 0.15 G, 3X/DAY
     Route: 048
     Dates: start: 20201109, end: 20201111

REACTIONS (5)
  - Rash [Recovering/Resolving]
  - Swelling [Recovering/Resolving]
  - Swelling face [Recovering/Resolving]
  - Erythema [Recovering/Resolving]
  - Pruritus [Recovering/Resolving]

NARRATIVE: CASE EVENT DATE: 20201111
